FAERS Safety Report 24965538 (Version 1)
Quarter: 2025Q1

REPORT INFORMATION
  Report Type: Spontaneous
  Country: US (occurrence: None)
  Receive Date: 20250213
  Receipt Date: 20250213
  Transmission Date: 20250409
  Serious: No
  Sender: FDA-CTU
  Company Number: None

PATIENT
  Age: 7 Day
  Sex: Female
  Weight: 3.37 kg

DRUGS (1)
  1. BEYFORTUS [Suspect]
     Active Substance: NIRSEVIMAB-ALIP
     Dates: start: 20250211, end: 20250211

REACTIONS (3)
  - Anxiety [None]
  - Decreased appetite [None]
  - Crying [None]

NARRATIVE: CASE EVENT DATE: 20250213
